FAERS Safety Report 11379203 (Version 1)
Quarter: 2015Q3

REPORT INFORMATION
  Report Type: Spontaneous
  Country: US (occurrence: US)
  Receive Date: 20150811
  Receipt Date: 20150811
  Transmission Date: 20151125
  Serious: Yes (Other)
  Sender: FDA-Public Use
  Company Number: US-ELI_LILLY_AND_COMPANY-US200904001472

PATIENT
  Age: 84 Year
  Sex: Male
  Weight: 72.56 kg

DRUGS (5)
  1. HUMIRA [Interacting]
     Active Substance: ADALIMUMAB
     Indication: RHEUMATOID ARTHRITIS
     Dosage: UNK, UNKNOWN
     Route: 065
     Dates: start: 20090209
  2. TOPROL XL [Concomitant]
     Active Substance: METOPROLOL SUCCINATE
     Indication: HYPERTENSION
     Dosage: 25 MG, DAILY (1/D)
     Route: 065
     Dates: start: 2007, end: 200709
  3. CIALIS [Suspect]
     Active Substance: TADALAFIL
     Indication: ERECTILE DYSFUNCTION
     Dosage: 20 MG, AS NEEDED
     Route: 065
     Dates: start: 2008
  4. ENBREL [Concomitant]
     Active Substance: ETANERCEPT
     Indication: RHEUMATOID ARTHRITIS
     Dosage: UNK, UNKNOWN
     Route: 065
     Dates: start: 200811, end: 20090202
  5. TOPROL XL [Concomitant]
     Active Substance: METOPROLOL SUCCINATE
     Dosage: 25 MG, DAILY (1/D)
     Route: 065
     Dates: start: 20090209

REACTIONS (5)
  - Hyperhidrosis [Unknown]
  - Syncope [Unknown]
  - Hypotension [Recovered/Resolved]
  - Pallor [Unknown]
  - Drug interaction [Unknown]

NARRATIVE: CASE EVENT DATE: 20090209
